FAERS Safety Report 24895629 (Version 2)
Quarter: 2025Q1

REPORT INFORMATION
  Report Type: Spontaneous
  Country: JP (occurrence: JP)
  Receive Date: 20250128
  Receipt Date: 20250128
  Transmission Date: 20250408
  Serious: Yes (Other)
  Sender: DERMAVANT SCIENCES
  Company Number: JP-JT-EVA202500152Dermavant Sciences Inc.

PATIENT

DRUGS (2)
  1. VTAMA [Suspect]
     Active Substance: TAPINAROF
     Route: 003
  2. UNSPECIFIED INGREDIENT [Concomitant]
     Active Substance: UNSPECIFIED INGREDIENT
     Route: 065

REACTIONS (1)
  - Dermatitis contact [Unknown]
